FAERS Safety Report 8064617-8 (Version None)
Quarter: 2012Q1

REPORT INFORMATION
  Report Type: 
  Country: None (occurrence: None)
  Receive Date: 20120123
  Receipt Date: 20120117
  Transmission Date: 20120608
  Serious: Yes (Other)
  Sender: FDA-Public Use
  Company Number: US-ASTRAZENECA-2011SE56731

PATIENT
  Age: 76 Year
  Sex: Female

DRUGS (1)
  1. ANASTROZOLE [Suspect]
     Indication: BREAST CANCER RECURRENT
     Route: 048
     Dates: start: 20110501

REACTIONS (6)
  - ADVERSE DRUG REACTION [None]
  - HOT FLUSH [None]
  - NEOPLASM MALIGNANT [None]
  - ASTHENIA [None]
  - ANAEMIA [None]
  - COLON CANCER [None]
